FAERS Safety Report 12098909 (Version 1)
Quarter: 2016Q1

REPORT INFORMATION
  Report Type: Spontaneous
  Country: US (occurrence: US)
  Receive Date: 20160222
  Receipt Date: 20160222
  Transmission Date: 20160526
  Serious: No
  Sender: FDA-Public Use
  Company Number: US-TEVA-589830USA

PATIENT
  Sex: Female
  Weight: 69.46 kg

DRUGS (1)
  1. ALENDRONIC SODIUM [Suspect]
     Active Substance: ALENDRONIC ACID
     Indication: OSTEOARTHRITIS
     Route: 065

REACTIONS (5)
  - Hypotension [Unknown]
  - Upper respiratory tract congestion [Unknown]
  - Joint crepitation [Unknown]
  - Gastrooesophageal reflux disease [Unknown]
  - Back pain [Unknown]
